FAERS Safety Report 7645092-1 (Version None)
Quarter: 2011Q3

REPORT INFORMATION
  Report Type: 
  Country: None (occurrence: None)
  Receive Date: 20110729
  Receipt Date: 20110722
  Transmission Date: 20111222
  Serious: Yes (Other)
  Sender: FDA-Public Use
  Company Number: PHEH2010US03501

PATIENT
  Sex: Female

DRUGS (7)
  1. CRESTOR [Concomitant]
  2. ZELNORM [Suspect]
     Indication: CONSTIPATION
     Dates: start: 20031001
  3. NEXIUM [Concomitant]
  4. LYRICA [Concomitant]
     Dosage: 75 MG, TID
     Route: 048
  5. MIRALAX [Concomitant]
  6. FLEXERIL [Concomitant]
     Route: 048
  7. ANAPROX [Concomitant]

REACTIONS (15)
  - BLOOD CHOLESTEROL INCREASED [None]
  - ABDOMINAL DISCOMFORT [None]
  - DYSPEPSIA [None]
  - GASTROOESOPHAGEAL REFLUX DISEASE [None]
  - GASTRIC POLYPS [None]
  - INJURY [None]
  - BACK PAIN [None]
  - NAUSEA [None]
  - CARDIAC DISORDER [None]
  - CHEST PAIN [None]
  - HAEMORRHOIDS [None]
  - PNEUMOPERITONEUM [None]
  - HAEMATOCHEZIA [None]
  - ABDOMINAL PAIN UPPER [None]
  - CHANGE OF BOWEL HABIT [None]
